FAERS Safety Report 16601903 (Version 3)
Quarter: 2019Q3

REPORT INFORMATION
  Report Type: Spontaneous
  Country: US (occurrence: US)
  Receive Date: 20190719
  Receipt Date: 20190812
  Transmission Date: 20191004
  Serious: Yes (Death, Hospitalization, Other)
  Sender: FDA-Public Use
  Company Number: US-JAZZ-2019-US-009847

PATIENT
  Sex: Male

DRUGS (3)
  1. DEFITELIO [Suspect]
     Active Substance: DEFIBROTIDE SODIUM
     Dosage: UNKNOWN DOSE
     Dates: start: 20190715, end: 20190715
  2. DEFITELIO [Suspect]
     Active Substance: DEFIBROTIDE SODIUM
     Dosage: 610 MG
     Dates: start: 20190620, end: 20190706
  3. DEFITELIO [Suspect]
     Active Substance: DEFIBROTIDE SODIUM
     Indication: PROPHYLAXIS
     Dosage: 640 MG (FOUR DOSES)
     Dates: start: 20190518, end: 20190519

REACTIONS (12)
  - Febrile neutropenia [Recovered/Resolved]
  - Renal failure [Unknown]
  - Tongue blistering [Recovered/Resolved]
  - Mouth haemorrhage [Recovered/Resolved]
  - Septic shock [Fatal]
  - Pyrexia [Recovered/Resolved]
  - Aspergillus infection [Fatal]
  - Off label use [Unknown]
  - Acute respiratory distress syndrome [Fatal]
  - Mental status changes [Recovered/Resolved]
  - Coagulopathy [Not Recovered/Not Resolved]
  - Haematoma [Unknown]

NARRATIVE: CASE EVENT DATE: 20190518
